FAERS Safety Report 18346170 (Version 1)
Quarter: 2020Q4

REPORT INFORMATION
  Report Type: Spontaneous
  Country: FR (occurrence: FR)
  Receive Date: 20201005
  Receipt Date: 20201005
  Transmission Date: 20210114
  Serious: No
  Sender: FDA-Public Use
  Company Number: FR-JAZZ-2020-FR-011218

PATIENT

DRUGS (1)
  1. SUNOSI [Suspect]
     Active Substance: SOLRIAMFETOL
     Indication: PRODUCT USED FOR UNKNOWN INDICATION
     Dosage: 150MG PLUS 1/2 OF 75MG
     Dates: start: 20200302, end: 20200825

REACTIONS (2)
  - Off label use [Unknown]
  - Weight increased [Not Recovered/Not Resolved]
